FAERS Safety Report 9188540 (Version 1)
Quarter: 2013Q1

REPORT INFORMATION
  Report Type: Spontaneous
  Country: MX (occurrence: MX)
  Receive Date: 20130325
  Receipt Date: 20130325
  Transmission Date: 20140127
  Serious: Yes (Hospitalization, Other)
  Sender: FDA-Public Use
  Company Number: PHHY2013MX028323

PATIENT
  Age: 79 Year
  Sex: Female

DRUGS (3)
  1. STALEVO [Suspect]
     Indication: PARKINSON^S DISEASE
     Dosage: 1 DF (200/50/12.5 MG) DAILY
     Route: 048
     Dates: start: 20121208, end: 20121223
  2. CLOIZONE [Concomitant]
     Indication: PARKINSON^S DISEASE
     Dosage: UNK UKN, UNK
     Dates: start: 201106
  3. LEVOTIDOXINE [Concomitant]
     Dosage: UNK UKN, UNK

REACTIONS (3)
  - Generalised oedema [Recovered/Resolved]
  - Pneumonia [Recovered/Resolved]
  - Cerebral infarction [Recovered/Resolved]
